FAERS Safety Report 10950361 (Version 1)
Quarter: 2015Q1

REPORT INFORMATION
  Report Type: Spontaneous
  Country: JP (occurrence: JP)
  Receive Date: 20150324
  Receipt Date: 20150324
  Transmission Date: 20150721
  Serious: Yes (Other)
  Sender: FDA-Public Use
  Company Number: JP-PFIZER INC-2012022128

PATIENT
  Age: 59 Year
  Sex: Male
  Weight: 53 kg

DRUGS (1)
  1. SUTENT [Suspect]
     Active Substance: SUNITINIB MALATE
     Indication: RENAL CELL CARCINOMA
     Dosage: UNK
     Dates: start: 20090814, end: 201008

REACTIONS (7)
  - Pneumonia [Unknown]
  - Disease progression [Unknown]
  - Dyspnoea [Unknown]
  - Ascites [Unknown]
  - Pleural effusion [Unknown]
  - Malaise [Unknown]
  - Renal cell carcinoma [Unknown]
